FAERS Safety Report 4823667-2 (Version None)
Quarter: 2005Q4

REPORT INFORMATION
  Report Type: 
  Country: None (occurrence: None)
  Receive Date: 20051109
  Receipt Date: 20051107
  Transmission Date: 20060501
  Serious: Yes (Other)
  Sender: FDA-Public Use
  Company Number: FR-GLAXOSMITHKLINE-B0399873A

PATIENT
  Age: 10 Year
  Sex: Male
  Weight: 22 kg

DRUGS (2)
  1. FORTUM [Suspect]
     Indication: PERITONITIS
     Dosage: 500MG PER DAY
     Route: 042
     Dates: start: 20051104, end: 20051106
  2. VANCOMYCIN [Suspect]
     Indication: PERITONITIS
     Route: 042
     Dates: start: 20051104, end: 20051106

REACTIONS (3)
  - DEPRESSED LEVEL OF CONSCIOUSNESS [None]
  - GRAND MAL CONVULSION [None]
  - OVERDOSE [None]
